FAERS Safety Report 11445553 (Version 9)
Quarter: 2017Q1

REPORT INFORMATION
  Report Type: Report from Study
  Country: US (occurrence: US)
  Receive Date: 20150902
  Receipt Date: 20170323
  Transmission Date: 20170428
  Serious: Yes (Other)
  Sender: FDA-Public Use
  Company Number: PHHY2015US067626

PATIENT
  Age: 64 Year
  Sex: Female

DRUGS (2)
  1. GILENYA [Suspect]
     Active Substance: FINGOLIMOD HYDROCHLORIDE
     Indication: MULTIPLE SCLEROSIS
     Dosage: UNK
     Route: 048
  2. B-COMPLEX (B50) [Concomitant]
     Indication: PRODUCT USED FOR UNKNOWN INDICATION
     Dosage: UNK
     Route: 065
     Dates: start: 20150801

REACTIONS (19)
  - Hypoaesthesia [Recovered/Resolved]
  - Dizziness [Recovered/Resolved]
  - Ataxia [Not Recovered/Not Resolved]
  - Herpes zoster [Not Recovered/Not Resolved]
  - Blood glucose increased [Unknown]
  - Alanine aminotransferase increased [Unknown]
  - Foot fracture [Recovered/Resolved]
  - Vertigo [Recovered/Resolved]
  - Renal cyst [Not Recovered/Not Resolved]
  - Eye pain [Recovered/Resolved]
  - Non-cardiac chest pain [Recovered/Resolved]
  - Protein total decreased [Unknown]
  - Fall [Recovered/Resolved]
  - Hemiparesis [Recovered/Resolved]
  - Urinary tract infection [Recovered/Resolved]
  - Bone pain [Unknown]
  - Fatigue [Not Recovered/Not Resolved]
  - Neutrophil count increased [Unknown]
  - Renal disorder [Not Recovered/Not Resolved]

NARRATIVE: CASE EVENT DATE: 20150219
